FAERS Safety Report 10936287 (Version 1)
Quarter: 2015Q1

REPORT INFORMATION
  Report Type: Spontaneous
  Country: US (occurrence: None)
  Receive Date: 20150319
  Receipt Date: 20150319
  Transmission Date: 20150721
  Serious: Yes (Hospitalization)
  Sender: FDA-Public Use
  Company Number: None

PATIENT
  Age: 57 Year
  Sex: Female

DRUGS (1)
  1. DIANEAL [Suspect]
     Active Substance: CALCIUM CHLORIDE\DEXTROSE\MAGNESIUM CHLORIDE\SODIUM CHLORIDE\SODIUM LACTATE
     Dosage: 6 LITER BAGS EVERY NIGHT INTRAPERITONEAL
     Route: 033
     Dates: start: 201412

REACTIONS (3)
  - Peritonitis bacterial [None]
  - Staphylococcal infection [None]
  - Atypical mycobacterium test positive [None]

NARRATIVE: CASE EVENT DATE: 20150104
